FAERS Safety Report 21672936 (Version 1)
Quarter: 2022Q4

REPORT INFORMATION
  Report Type: Report from Study
  Country: US (occurrence: US)
  Receive Date: 20221202
  Receipt Date: 20221202
  Transmission Date: 20230113
  Serious: No
  Sender: FDA-Public Use
  Company Number: US-ABBVIE-4219867

PATIENT
  Age: 73 Year
  Sex: Female

DRUGS (1)
  1. IMBRUVICA [Suspect]
     Active Substance: IBRUTINIB
     Indication: B-cell small lymphocytic lymphoma
     Route: 048
     Dates: start: 20220620

REACTIONS (4)
  - Dyspepsia [Unknown]
  - Petechiae [Unknown]
  - Gastrooesophageal reflux disease [Unknown]
  - Contusion [Unknown]

NARRATIVE: CASE EVENT DATE: 20221001
